FAERS Safety Report 23721001 (Version 1)
Quarter: 2024Q2

REPORT INFORMATION
  Report Type: Spontaneous
  Country: CN (occurrence: CN)
  Receive Date: 20240409
  Receipt Date: 20240409
  Transmission Date: 20240716
  Serious: Yes (Disabling)
  Sender: FDA-Public Use
  Company Number: CN-AstraZeneca-2024A080988

PATIENT

DRUGS (2)
  1. GOSERELIN [Suspect]
     Active Substance: GOSERELIN
     Indication: Endometriosis
     Dosage: 3.6MG UNKNOWN
     Route: 058
     Dates: start: 20231227, end: 20240321
  2. ZOLADEX [Suspect]
     Active Substance: GOSERELIN ACETATE
     Indication: Endometriosis
     Dosage: UNK
     Route: 065

REACTIONS (1)
  - Hepatic function abnormal [Not Recovered/Not Resolved]

NARRATIVE: CASE EVENT DATE: 20240227
